FAERS Safety Report 4757080-3 (Version None)
Quarter: 2005Q3

REPORT INFORMATION
  Report Type: 
  Country: None (occurrence: None)
  Receive Date: 20050829
  Receipt Date: 20050818
  Transmission Date: 20060218
  Serious: Yes (Other)
  Sender: FDA-Public Use
  Company Number: SUS1-2005-00534

PATIENT
  Age: 29 Year
  Sex: Female

DRUGS (4)
  1. ADDERALL 15 [Suspect]
     Indication: ATTENTION DEFICIT/HYPERACTIVITY DISORDER
     Dosage: 30  MG IN AM  15 MG AT LUNCH, ORAL
     Route: 048
     Dates: start: 19981001, end: 19990505
  2. ADDERALL 15 [Suspect]
     Indication: ATTENTION DEFICIT/HYPERACTIVITY DISORDER
     Dosage: 30  MG IN AM  15 MG AT LUNCH, ORAL
     Route: 048
     Dates: start: 20000301
  3. CLONAZEPAM [Concomitant]
  4. TYLENOL [Concomitant]

REACTIONS (5)
  - DRUG EXPOSURE DURING PREGNANCY [None]
  - HAEMATOTOXICITY [None]
  - INSOMNIA [None]
  - OEDEMA [None]
  - PREGNANCY [None]
